FAERS Safety Report 6151381-2 (Version None)
Quarter: 2009Q2

REPORT INFORMATION
  Report Type: 
  Country: None (occurrence: None)
  Receive Date: 20090410
  Receipt Date: 20090402
  Transmission Date: 20091009
  Serious: Yes (Hospitalization)
  Sender: FDA-Public Use
  Company Number: JP-ABBOTT-09P-087-0561638-00

PATIENT
  Sex: Male

DRUGS (2)
  1. LEUPLIN SR FOR INJECTION 11.25 MG [Suspect]
     Indication: PROSTATE CANCER STAGE II
     Route: 058
     Dates: start: 20061113, end: 20061113
  2. ADALAT CC [Concomitant]
     Indication: HYPERTENSION
     Route: 048

REACTIONS (1)
  - CEREBRAL INFARCTION [None]
